FAERS Safety Report 9651064 (Version 1)
Quarter: 2013Q4

REPORT INFORMATION
  Report Type: Spontaneous
  Country: US (occurrence: US)
  Receive Date: 20131029
  Receipt Date: 20131029
  Transmission Date: 20140711
  Serious: No
  Sender: FDA-Public Use
  Company Number: US-PFIZER INC-2013305959

PATIENT
  Age: 76 Year
  Sex: Male

DRUGS (5)
  1. SUTENT [Suspect]
     Dosage: 50 MG, QD 28 D ON/ 14 D OFF
     Route: 048
     Dates: start: 20120522
  2. ASPIRIN [Concomitant]
     Dosage: UNK
  3. PROBENECID [Concomitant]
     Dosage: UNK
  4. LOSARTAN [Concomitant]
     Dosage: UNK
  5. PRAVASTATIN [Concomitant]
     Dosage: UNK

REACTIONS (2)
  - Pain in extremity [Unknown]
  - Arthralgia [Unknown]
